FAERS Safety Report 5357059-7 (Version None)
Quarter: 2007Q2

REPORT INFORMATION
  Report Type: 
  Country: None (occurrence: None)
  Receive Date: 20070614
  Receipt Date: 20070606
  Transmission Date: 20071010
  Serious: Yes (Hospitalization, Other)
  Sender: FDA-Public Use
  Company Number: CA-ASTRAZENECA-2007UW13305

PATIENT
  Age: 21199 Day
  Sex: Female
  Weight: 79.5 kg

DRUGS (2)
  1. NOLVADEX [Suspect]
     Indication: BREAST CANCER
     Route: 048
  2. HORMONE REPLACEMENT THERAPY [Concomitant]
     Dates: end: 19930101

REACTIONS (2)
  - UTERINE LEIOMYOMA [None]
  - UTERINE POLYP [None]
